FAERS Safety Report 9832033 (Version 1)
Quarter: 2014Q1

REPORT INFORMATION
  Report Type: Spontaneous
  Country: IN (occurrence: IN)
  Receive Date: 20140121
  Receipt Date: 20140121
  Transmission Date: 20141002
  Serious: Yes (Other)
  Sender: FDA-Public Use
  Company Number: PHHY2014IN004451

PATIENT
  Age: 8 Year
  Sex: Male

DRUGS (1)
  1. METHYLPHENIDATE [Suspect]
     Indication: ATTENTION DEFICIT/HYPERACTIVITY DISORDER
     Dosage: 5 MG, PER DAY

REACTIONS (1)
  - Suicidal ideation [Recovered/Resolved]
